FAERS Safety Report 4652918-2 (Version None)
Quarter: 2005Q2

REPORT INFORMATION
  Report Type: 
  Country: None (occurrence: None)
  Receive Date: 20050503
  Receipt Date: 20050414
  Transmission Date: 20051028
  Serious: Yes (Congenital Anomaly)
  Sender: FDA-Public Use
  Company Number: B0268703A

PATIENT
  Sex: Male
  Weight: 1.9051 kg

DRUGS (1)
  1. LAMICTAL [Suspect]
     Dosage: SEE IMAGE
     Dates: start: 20011109

REACTIONS (5)
  - ANAL ATRESIA [None]
  - ANAL FISTULA [None]
  - DRUG EXPOSURE DURING PREGNANCY [None]
  - MULTIPLE CONGENITAL ABNORMALITIES [None]
  - PREMATURE BABY [None]
